FAERS Safety Report 6629543-7 (Version None)
Quarter: 2010Q1

REPORT INFORMATION
  Report Type: 
  Country: None (occurrence: None)
  Receive Date: 20100311
  Receipt Date: 20100304
  Transmission Date: 20100710
  Serious: Yes (Other)
  Sender: FDA-Public Use
  Company Number: US-TEVA-226576USA

PATIENT
  Sex: Female
  Weight: 66 kg

DRUGS (4)
  1. COPAXONE [Suspect]
     Indication: MULTIPLE SCLEROSIS
     Route: 058
     Dates: start: 20081201, end: 20090601
  2. INTERFERON BETA-1A [Suspect]
     Indication: MULTIPLE SCLEROSIS
     Dosage: 44 MCG
     Dates: start: 20090623
  3. SULINDAC [Concomitant]
     Indication: DESMOID TUMOUR
  4. PANTOPRAZOLE [Concomitant]
     Indication: GASTROOESOPHAGEAL REFLUX DISEASE

REACTIONS (5)
  - CENTRAL NERVOUS SYSTEM LESION [None]
  - DEPRESSION [None]
  - PAIN IN EXTREMITY [None]
  - RENAL CYST [None]
  - RENAL INFARCT [None]
